FAERS Safety Report 16954765 (Version 1)
Quarter: 2019Q4

REPORT INFORMATION
  Report Type: Spontaneous
  Country: CA (occurrence: CA)
  Receive Date: 20191024
  Receipt Date: 20191024
  Transmission Date: 20200122
  Serious: Yes (Other)
  Sender: FDA-Public Use
  Company Number: CA-PFIZER INC-2019454536

PATIENT
  Age: 83 Year
  Sex: Female
  Weight: 40 kg

DRUGS (1)
  1. PHENYTOIN SODIUM. [Suspect]
     Active Substance: PHENYTOIN SODIUM
     Indication: STATUS EPILEPTICUS
     Dosage: 1 G, UNK
     Route: 042

REACTIONS (6)
  - Dysarthria [Recovered/Resolved]
  - Hypotension [Recovered/Resolved]
  - Limb discomfort [Recovered/Resolved]
  - Nystagmus [Recovered/Resolved]
  - Confusional state [Recovered/Resolved]
  - Nausea [Recovered/Resolved]
